FAERS Safety Report 19480568 (Version 1)
Quarter: 2021Q3

REPORT INFORMATION
  Report Type: Spontaneous
  Country: US (occurrence: US)
  Receive Date: 20210701
  Receipt Date: 20210701
  Transmission Date: 20211014
  Serious: No
  Sender: FDA-Public Use
  Company Number: US-JNJFOC-20210655766

PATIENT
  Age: 51 Year
  Sex: Female

DRUGS (1)
  1. ULTRAM [Suspect]
     Active Substance: TRAMADOL HYDROCHLORIDE
     Indication: MYALGIA
     Route: 065
     Dates: start: 2012

REACTIONS (2)
  - Headache [Unknown]
  - Insomnia [Unknown]

NARRATIVE: CASE EVENT DATE: 2012
